FAERS Safety Report 15922830 (Version 7)
Quarter: 2020Q1

REPORT INFORMATION
  Report Type: Spontaneous
  Country: US (occurrence: US)
  Receive Date: 20190206
  Receipt Date: 20200121
  Transmission Date: 20200409
  Serious: Yes (Other)
  Sender: FDA-Public Use
  Company Number: US-AMGEN-USASP2019017081

PATIENT
  Sex: Female

DRUGS (1)
  1. ENBREL [Suspect]
     Active Substance: ETANERCEPT
     Indication: RHEUMATOID ARTHRITIS
     Dosage: UNK
     Route: 065
     Dates: start: 2007, end: 2012

REACTIONS (7)
  - Treatment failure [Unknown]
  - Nausea [Unknown]
  - Gait disturbance [Unknown]
  - Injection site reaction [Unknown]
  - Atrioventricular block [Unknown]
  - Stress [Unknown]
  - Myocardial infarction [Unknown]
